FAERS Safety Report 23285649 (Version 1)
Quarter: 2023Q4

REPORT INFORMATION
  Report Type: Spontaneous
  Country: CL (occurrence: CL)
  Receive Date: 20231212
  Receipt Date: 20231212
  Transmission Date: 20240109
  Serious: Yes (Other)
  Sender: FDA-Public Use
  Company Number: CL-VIIV HEALTHCARE LIMITED-CL2023AMR172509

PATIENT

DRUGS (2)
  1. TRIUMEQ [Suspect]
     Active Substance: ABACAVIR SULFATE\DOLUTEGRAVIR SODIUM\LAMIVUDINE
     Indication: Antiretroviral therapy
     Dosage: UNK
  2. DOLUTEGRAVIR\LAMIVUDINE\TENOFOVIR [Suspect]
     Active Substance: DOLUTEGRAVIR\LAMIVUDINE\TENOFOVIR
     Indication: Antiretroviral therapy
     Dosage: UNK

REACTIONS (10)
  - Hepatitis [Unknown]
  - Drug reaction with eosinophilia and systemic symptoms [Unknown]
  - Malaise [Unknown]
  - Dizziness [Unknown]
  - Fatigue [Unknown]
  - Pyrexia [Unknown]
  - Oropharyngeal pain [Unknown]
  - Erythema [Unknown]
  - Condition aggravated [Unknown]
  - Product dispensing error [Unknown]
